FAERS Safety Report 20108432 (Version 1)
Quarter: 2021Q4

REPORT INFORMATION
  Report Type: Spontaneous
  Country: US (occurrence: US)
  Receive Date: 20211124
  Receipt Date: 20211124
  Transmission Date: 20220303
  Serious: No
  Sender: FDA-Public Use
  Company Number: US-PERRIGO-21US011558

PATIENT
  Age: 62 Year
  Sex: Female
  Weight: 69.841 kg

DRUGS (10)
  1. POLYETHYLENE GLYCOL 3350 [Suspect]
     Active Substance: POLYETHYLENE GLYCOL 3350
     Indication: Constipation
     Dosage: 17 G, PRN
     Route: 048
     Dates: start: 202105, end: 20210816
  2. LORAZEPAM [Suspect]
     Active Substance: LORAZEPAM
     Indication: Anxiety
     Dosage: UNKNOWN, UNKNOWN
     Route: 065
     Dates: end: 20210519
  3. LORAZEPAM [Suspect]
     Active Substance: LORAZEPAM
     Dosage: UNKNOWN, UNKNOWN
     Route: 065
     Dates: start: 202105
  4. ROSUVASTATIN [Suspect]
     Active Substance: ROSUVASTATIN
     Indication: Blood cholesterol increased
     Dosage: 1 TABLET, QD
     Route: 048
     Dates: start: 202103
  5. CLONAZEPAM [Concomitant]
     Active Substance: CLONAZEPAM
     Indication: Anxiety
     Dosage: UNKNOWN, UNKNOWN
     Route: 065
     Dates: start: 20210520, end: 202105
  6. GABAPENTIN [Concomitant]
     Active Substance: GABAPENTIN
     Indication: Anxiety
     Dosage: UNKNOWN, UNKNOWN
     Route: 065
  7. SYNTHROID [Concomitant]
     Active Substance: LEVOTHYROXINE SODIUM
     Indication: Hypothyroidism
     Dosage: UNKNOWN, UNKNOWN
     Route: 065
  8. XIIDRA [Concomitant]
     Active Substance: LIFITEGRAST
     Indication: Dry eye
     Dosage: UNKNOWN, UNKNOWN
     Route: 047
  9. SYMBICORT [Concomitant]
     Active Substance: BUDESONIDE\FORMOTEROL FUMARATE DIHYDRATE
     Indication: Asthma
     Dosage: UNKNOWN, UNKNOWN
     Route: 065
  10. CLARITIN                           /00413701/ [Concomitant]
     Indication: Mast cell activation syndrome
     Dosage: UNKNOWN, UNKNOWN
     Route: 065
     Dates: start: 20210520, end: 202105

REACTIONS (1)
  - Oral discomfort [Not Recovered/Not Resolved]

NARRATIVE: CASE EVENT DATE: 20210501
